FAERS Safety Report 13271738 (Version 1)
Quarter: 2017Q1

REPORT INFORMATION
  Report Type: Not Available
  Country: SG (occurrence: SG)
  Receive Date: 20170227
  Receipt Date: 20170227
  Transmission Date: 20170428
  Serious: Yes (Other)
  Sender: FDA-Public Use
  Company Number: SG--2017-SG-000001

PATIENT
  Age: 59 Year
  Sex: Male

DRUGS (2)
  1. CIPROFLOXACIN. [Concomitant]
     Active Substance: CIPROFLOXACIN
     Indication: ABDOMINAL INFECTION
     Dosage: 500 MG TWICE A DAY
     Route: 048
  2. METRONIDAZOLE BRAND UNSPECIFIED (VIVIMED) [Suspect]
     Active Substance: METRONIDAZOLE
     Indication: ABDOMINAL INFECTION
     Dosage: 400 MG THRICE A DAY
     Route: 048

REACTIONS (1)
  - Cerebellar syndrome [Recovered/Resolved]
